FAERS Safety Report 24103897 (Version 2)
Quarter: 2024Q4

REPORT INFORMATION
  Report Type: Spontaneous
  Country: CA (occurrence: CA)
  Receive Date: 20240717
  Receipt Date: 20241224
  Transmission Date: 20250115
  Serious: Yes (Hospitalization, Other)
  Sender: ACCORD
  Company Number: None

PATIENT
  Age: 54 Year
  Sex: Male
  Weight: 112 kg

DRUGS (17)
  1. CISPLATIN [Suspect]
     Active Substance: CISPLATIN
     Indication: Mantle cell lymphoma
     Dosage: CYCLICAL
     Route: 042
  2. CYTARABINE [Suspect]
     Active Substance: CYTARABINE
     Indication: Mantle cell lymphoma
     Dosage: POWDER FOR SOLUTION, INTRATHECAL, CYCLICAL
     Route: 042
  3. RITUXIMAB [Suspect]
     Active Substance: RITUXIMAB
     Indication: Mantle cell lymphoma
     Dosage: CYCLICAL
     Route: 058
  4. CLONAZEPAM [Concomitant]
     Active Substance: CLONAZEPAM
  5. CYCLOPHOSPHAMIDE [Concomitant]
     Active Substance: CYCLOPHOSPHAMIDE
  6. DEXAMETHASONE [Concomitant]
     Active Substance: DEXAMETHASONE
     Route: 065
  7. DOXORUBICIN [Concomitant]
     Active Substance: DOXORUBICIN
  8. EMEND [Concomitant]
     Active Substance: APREPITANT
  9. FILGRASTIM [Concomitant]
     Active Substance: FILGRASTIM
  10. IBRUTINIB [Concomitant]
     Active Substance: IBRUTINIB
  11. METOCLOPRAMIDE [Concomitant]
     Active Substance: METOCLOPRAMIDE
  12. OLANZAPINE [Concomitant]
     Active Substance: OLANZAPINE
  13. ONDANSETRON [Concomitant]
     Active Substance: ONDANSETRON
  14. PANTOPRAZOLE [Concomitant]
     Active Substance: PANTOPRAZOLE
     Route: 065
  15. PREDNISONE [Concomitant]
     Active Substance: PREDNISONE
  16. Prochlorpemazine [Concomitant]
  17. VINCRISTINE [Concomitant]
     Active Substance: VINCRISTINE

REACTIONS (5)
  - Intestinal obstruction [Recovering/Resolving]
  - Neutropenic colitis [Recovering/Resolving]
  - Acute kidney injury [Recovering/Resolving]
  - Electrolyte imbalance [Recovering/Resolving]
  - Off label use [Recovering/Resolving]
